FAERS Safety Report 21022675 (Version 2)
Quarter: 2022Q3

REPORT INFORMATION
  Report Type: Spontaneous
  Country: US (occurrence: US)
  Receive Date: 20220629
  Receipt Date: 20220707
  Transmission Date: 20221026
  Serious: Yes (Hospitalization, Other)
  Sender: FDA-Public Use
  Company Number: US-PFIZER INC-PV202200009751

PATIENT
  Age: 45 Year
  Sex: Female

DRUGS (5)
  1. CLINDAMYCIN [Suspect]
     Active Substance: CLINDAMYCIN
     Indication: Oropharyngeal pain
     Dosage: UNK
     Route: 048
  2. CLINDAMYCIN [Suspect]
     Active Substance: CLINDAMYCIN
     Indication: Lymphadenopathy
     Dosage: UNK
  3. CLINDAMYCIN [Suspect]
     Active Substance: CLINDAMYCIN
     Indication: Alpha haemolytic streptococcal infection
  4. CLINDAMYCIN [Suspect]
     Active Substance: CLINDAMYCIN
     Indication: Fusobacterium infection
  5. CLINDAMYCIN [Suspect]
     Active Substance: CLINDAMYCIN
     Indication: Peptostreptococcus infection

REACTIONS (3)
  - Endocarditis [Unknown]
  - Lung disorder [Unknown]
  - Gastrointestinal disorder [Unknown]
